FAERS Safety Report 22905278 (Version 6)
Quarter: 2025Q3

REPORT INFORMATION
  Report Type: Report from Study
  Country: JP (occurrence: JP)
  Receive Date: 20230905
  Receipt Date: 20250915
  Transmission Date: 20251020
  Serious: Yes (Hospitalization, Other)
  Sender: ALEXION PHARMACEUTICALS
  Company Number: 2023A199311

PATIENT
  Age: 62 Year
  Sex: Male
  Weight: 58 kg

DRUGS (13)
  1. ACALABRUTINIB [Suspect]
     Active Substance: ACALABRUTINIB
     Indication: Chronic lymphocytic leukaemia
     Dosage: 200 MILLIGRAM, BID
     Dates: start: 20230405, end: 20230711
  2. ACALABRUTINIB [Suspect]
     Active Substance: ACALABRUTINIB
     Dosage: 200 MILLIGRAM, BID
     Dates: start: 20231003
  3. GAZYVA [Concomitant]
     Active Substance: OBINUTUZUMAB
  4. GAZYVA [Concomitant]
     Active Substance: OBINUTUZUMAB
  5. GAZYVA [Concomitant]
     Active Substance: OBINUTUZUMAB
  6. SULFAMETHOXAZOLE\TRIMETHOPRIM [Concomitant]
     Active Substance: SULFAMETHOXAZOLE\TRIMETHOPRIM
     Indication: Infection prophylaxis
     Dosage: .5 DOSAGE FORM, QD
     Dates: start: 20230410
  7. ACYCLOVIR [Concomitant]
     Active Substance: ACYCLOVIR
     Indication: Infection prophylaxis
     Dosage: 200 MILLIGRAM, QD
     Dates: start: 20230410
  8. FAMOTIDINE [Concomitant]
     Active Substance: FAMOTIDINE
     Indication: Prophylaxis
     Dosage: 20 MILLIGRAM, QD
     Dates: start: 20230405
  9. ISCOTIN [Concomitant]
     Active Substance: ISONIAZID
     Indication: Infection prophylaxis
     Dosage: 300 MILLIGRAM, QD
     Dates: start: 20230405
  10. NIFEDIPINE [Concomitant]
     Active Substance: NIFEDIPINE
     Indication: Infection prophylaxis
     Dosage: 40 MILLIGRAM, QD
  11. DUTASTERIDE [Concomitant]
     Active Substance: DUTASTERIDE
     Dosage: .5 MILLIGRAM, QD
  12. NAFTOPIDIL [Concomitant]
     Active Substance: NAFTOPIDIL
     Dosage: 25 MILLIGRAM, QD
  13. LORAZEPAM [Concomitant]
     Active Substance: LORAZEPAM
     Dosage: 1.5 MILLIGRAM, QD

REACTIONS (7)
  - Atrial fibrillation [Recovered/Resolved]
  - COVID-19 [Recovered/Resolved]
  - Pyrexia [Recovered/Resolved]
  - Weight increased [Unknown]
  - Injection related reaction [Recovered/Resolved]
  - Supraventricular extrasystoles [Recovered/Resolved]
  - Constipation [Recovering/Resolving]

NARRATIVE: CASE EVENT DATE: 20230101
